FAERS Safety Report 20775078 (Version 1)
Quarter: 2022Q2

REPORT INFORMATION
  Report Type: Other
  Country: CA (occurrence: CA)
  Receive Date: 20220502
  Receipt Date: 20220502
  Transmission Date: 20220720
  Serious: Yes (Other)
  Sender: FDA-Public Use
  Company Number: CA-TOLMAR, INC.-22CA034279

PATIENT
  Age: 77 Year
  Sex: Male

DRUGS (3)
  1. ELIGARD [Suspect]
     Active Substance: LEUPROLIDE ACETATE
     Indication: Prostate cancer
     Dosage: UNK
     Route: 058
  2. XTANDI [Suspect]
     Active Substance: ENZALUTAMIDE
     Indication: Product used for unknown indication
     Dosage: UNK
  3. CASODEX [Suspect]
     Active Substance: BICALUTAMIDE
     Indication: Product used for unknown indication
     Dosage: UNK

REACTIONS (9)
  - Weight decreased [Unknown]
  - Abdominal pain upper [Unknown]
  - Nausea [Unknown]
  - Hypertensive crisis [Unknown]
  - Decreased appetite [Unknown]
  - Dizziness [Unknown]
  - Asthenia [Unknown]
  - Hot flush [Unknown]
  - Prostatic specific antigen increased [Unknown]
